FAERS Safety Report 5556662-9 (Version None)
Quarter: 2007Q4

REPORT INFORMATION
  Report Type: 
  Country: None (occurrence: None)
  Receive Date: 20071213
  Receipt Date: 20071011
  Transmission Date: 20080405
  Serious: No
  Sender: FDA-Public Use
  Company Number: US-AMGEN-KDL242393

PATIENT
  Sex: Female

DRUGS (4)
  1. ENBREL [Suspect]
     Indication: PSORIATIC ARTHROPATHY
     Route: 058
     Dates: start: 20070801
  2. ENBREL [Suspect]
     Indication: DRUG USE FOR UNKNOWN INDICATION
  3. ENBREL [Suspect]
     Indication: OSTEOARTHRITIS
  4. ENBREL [Suspect]
     Indication: PSORIASIS

REACTIONS (8)
  - ARTHRALGIA [None]
  - BACK PAIN [None]
  - DIZZINESS [None]
  - FALL [None]
  - FIBROMYALGIA [None]
  - MIGRAINE [None]
  - PSORIASIS [None]
  - VULVOVAGINAL MYCOTIC INFECTION [None]
